FAERS Safety Report 5549235-5 (Version None)
Quarter: 2007Q4

REPORT INFORMATION
  Report Type: 
  Country: None (occurrence: None)
  Receive Date: 20071210
  Receipt Date: 20071128
  Transmission Date: 20080405
  Serious: Yes (Other)
  Sender: FDA-Public Use
  Company Number: 230763J07USA

PATIENT
  Age: 68 Year
  Sex: Male
  Weight: 65.318 kg

DRUGS (4)
  1. REBIF [Suspect]
     Indication: MULTIPLE SCLEROSIS
     Dosage: 44 MCG, 3 IN 1 WEEKS, SUBCUTANEOUS
     Route: 058
     Dates: start: 20030717
  2. CRESTOR [Concomitant]
  3. OXYBUTININ (OXYBUTYNIN) [Concomitant]
  4. ASPIRIN [Concomitant]

REACTIONS (1)
  - ABDOMINAL HERNIA [None]
